FAERS Safety Report 25096881 (Version 2)
Quarter: 2025Q2

REPORT INFORMATION
  Report Type: Spontaneous
  Country: US (occurrence: US)
  Receive Date: 20250319
  Receipt Date: 20250616
  Transmission Date: 20250717
  Serious: No
  Sender: ITALFARMACO SPA
  Company Number: US-ITALFARMACO SPA-2173232

PATIENT
  Age: 33 Year
  Sex: Male
  Weight: 44.05 kg

DRUGS (3)
  1. DUVYZAT [Suspect]
     Active Substance: GIVINOSTAT
     Indication: Duchenne muscular dystrophy
     Dates: start: 20250123
  2. INFLUENZA VIRUS VACCINE [Concomitant]
     Active Substance: INFLUENZA VIRUS VACCINE
  3. COVID-19 VACCINE [Concomitant]

REACTIONS (2)
  - Platelet count decreased [Unknown]
  - Platelet count abnormal [Unknown]
